FAERS Safety Report 9394793 (Version 1)
Quarter: 2013Q3

REPORT INFORMATION
  Report Type: Report from Study
  Country: CL (occurrence: CL)
  Receive Date: 20130711
  Receipt Date: 20130711
  Transmission Date: 20140515
  Serious: Yes (Other)
  Sender: FDA-Public Use
  Company Number: CL-ROCHE-1245707

PATIENT
  Age: 62 Year
  Sex: Male
  Weight: 92 kg

DRUGS (2)
  1. XELODA [Suspect]
     Indication: COLON CANCER
     Dosage: THE LAST TABLET OF XELODA  CONSUMED ON 01/JUN/2013.
     Route: 048
     Dates: start: 20130304, end: 20130604
  2. OXALIPLATIN [Suspect]
     Indication: COLON CANCER
     Route: 042
     Dates: start: 20130304, end: 20130304

REACTIONS (2)
  - Neoplasm [Unknown]
  - Drug ineffective [Unknown]
